FAERS Safety Report 15896565 (Version 2)
Quarter: 2019Q1

REPORT INFORMATION
  Report Type: Report from Study
  Country: US (occurrence: US)
  Receive Date: 20190131
  Receipt Date: 20190213
  Transmission Date: 20190417
  Serious: Yes (Hospitalization)
  Sender: FDA-Public Use
  Company Number: US-ACTELION-A-NJ2018-177405

PATIENT
  Age: 55 Year
  Sex: Male

DRUGS (2)
  1. OPSUMIT [Suspect]
     Active Substance: MACITENTAN
     Indication: PULMONARY ARTERIAL HYPERTENSION
     Dosage: 10 MG, QD
     Route: 048
     Dates: start: 20180724
  2. OXYGEN. [Concomitant]
     Active Substance: OXYGEN
     Dosage: 4 %, CONTINUOUS

REACTIONS (13)
  - Rhinovirus infection [Recovering/Resolving]
  - Condition aggravated [Recovering/Resolving]
  - Tooth disorder [Unknown]
  - Peripheral swelling [Recovered/Resolved]
  - Fluid overload [Recovered/Resolved]
  - Blood bilirubin increased [Recovered/Resolved]
  - Cough [Not Recovered/Not Resolved]
  - Therapy non-responder [Not Recovered/Not Resolved]
  - Hypoxia [Recovered/Resolved]
  - Alanine aminotransferase increased [Recovering/Resolving]
  - Interstitial lung disease [Recovering/Resolving]
  - Bronchitis [Recovered/Resolved]
  - Dyspnoea exertional [Not Recovered/Not Resolved]

NARRATIVE: CASE EVENT DATE: 20180724
